FAERS Safety Report 9307057 (Version 2)
Quarter: 2013Q4

REPORT INFORMATION
  Report Type: Spontaneous
  Country: US (occurrence: US)
  Receive Date: 20130523
  Receipt Date: 20131113
  Transmission Date: 20140711
  Serious: Yes (Hospitalization)
  Sender: FDA-Public Use
  Company Number: US-B.I. PHARMACEUTICALS,INC./RIDGEFIELD-2013-BI-14415BP

PATIENT
  Age: 72 Year
  Sex: Male
  Weight: 144.24 kg

DRUGS (16)
  1. PRADAXA [Suspect]
     Indication: ANTICOAGULANT THERAPY
     Dosage: 300 MG
     Route: 048
     Dates: start: 20110322, end: 20110903
  2. PRADAXA [Suspect]
     Indication: ATRIAL FIBRILLATION
  3. METOPROLOL [Concomitant]
     Dosage: 200 MG
     Route: 048
  4. DILTIAZEM [Concomitant]
     Dosage: 360 MG
     Route: 048
     Dates: start: 2010
  5. LEVOTHYROXINE [Concomitant]
     Dosage: 150 MCG
     Route: 048
  6. PREVACID [Concomitant]
     Dosage: 15 MG
  7. MAGNESIUM [Concomitant]
     Dosage: 100 MG
     Route: 048
  8. MULTIVITAMIN [Concomitant]
     Route: 048
  9. DIGOXIN [Concomitant]
     Dosage: 0.25 MG
     Route: 048
     Dates: start: 2011
  10. POTASSIUM CHLORIDE [Concomitant]
     Dosage: 10 MEQ
     Route: 048
     Dates: start: 2011
  11. ALBUTEROL [Concomitant]
     Indication: DYSPNOEA
     Route: 055
  12. VITAMIN C [Concomitant]
     Dosage: 100 MG
     Route: 048
  13. ZINC [Concomitant]
     Dosage: 25 MG
     Route: 048
  14. FEXOFENADINE [Concomitant]
     Dosage: 60 MG
     Route: 048
  15. TAMSULOSIN [Concomitant]
     Dosage: 0.4 MG
     Route: 048
  16. CYCLOBENZAPRINE [Concomitant]
     Dates: start: 2007

REACTIONS (3)
  - Upper gastrointestinal haemorrhage [Unknown]
  - Syncope [Unknown]
  - Anaemia [Unknown]
